FAERS Safety Report 5496446-3 (Version None)
Quarter: 2007Q4

REPORT INFORMATION
  Report Type: 
  Country: None (occurrence: None)
  Receive Date: 20071023
  Receipt Date: 20071010
  Transmission Date: 20080405
  Serious: Yes (Other)
  Sender: FDA-Public Use
  Company Number: 2007332900

PATIENT
  Age: 43 Year
  Sex: Male
  Weight: 80 kg

DRUGS (4)
  1. MYLANTA POCKETPACK (MAGNESIUM HYDROXIDE, CALCIUM CARBONATE) [Suspect]
     Indication: GASTROINTESTINAL DISORDER
     Dosage: ONE LOZENGE PRN, ORAL
     Route: 048
     Dates: start: 20071008
  2. VASOPRIL /BRA/ (ENALAPRIL MALEATE) [Concomitant]
  3. AMARYL [Concomitant]
  4. METFORMIN HCL [Concomitant]

REACTIONS (3)
  - BLOOD GLUCOSE INCREASED [None]
  - FEELING ABNORMAL [None]
  - HYPERHIDROSIS [None]
